FAERS Safety Report 10967077 (Version 1)
Quarter: 2015Q1

REPORT INFORMATION
  Report Type: Spontaneous
  Country: US (occurrence: None)
  Receive Date: 20150327
  Receipt Date: 20150327
  Transmission Date: 20150721
  Serious: Yes (Life-Threatening, Hospitalization)
  Sender: FDA-Public Use
  Company Number: None

PATIENT
  Age: 49 Year
  Sex: Male
  Weight: 113 kg

DRUGS (8)
  1. MOTRIN [Concomitant]
     Active Substance: IBUPROFEN
  2. ZESTRIL [Suspect]
     Active Substance: LISINOPRIL
     Indication: HYPERTENSION
     Dosage: 1 TABLET
     Route: 048
  3. TOPROL XL [Concomitant]
     Active Substance: METOPROLOL SUCCINATE
  4. HCTZ [Concomitant]
     Active Substance: HYDROCHLOROTHIAZIDE
  5. ASPIRIN. [Concomitant]
     Active Substance: ASPIRIN
  6. QVAR 40 MCG [Concomitant]
  7. NORVAC [Concomitant]
  8. ZESTRIL [Concomitant]
     Active Substance: LISINOPRIL

REACTIONS (6)
  - Dysphagia [None]
  - Local swelling [None]
  - Enlarged uvula [None]
  - Dyspnoea [None]
  - Dysphonia [None]
  - Oropharyngeal pain [None]

NARRATIVE: CASE EVENT DATE: 20150323
